FAERS Safety Report 7943958-6 (Version None)
Quarter: 2011Q4

REPORT INFORMATION
  Report Type: 
  Country: None (occurrence: None)
  Receive Date: 20111128
  Receipt Date: 20111118
  Transmission Date: 20120403
  Serious: Yes (Other)
  Sender: FDA-Public Use
  Company Number: CN-ASTRAZENECA-2011SE70342

PATIENT

DRUGS (7)
  1. PROPOFOL [Suspect]
     Dosage: 4-6 MG/KG/H
     Route: 042
  2. MIDAZOLAM [Suspect]
     Indication: GENERAL ANAESTHESIA
     Dosage: 0.05-0.075 MG/KG
     Route: 042
  3. REMIFENTANIL [Suspect]
     Indication: GENERAL ANAESTHESIA
     Dosage: 1 UG/KG
     Route: 042
  4. PROPOFOL [Suspect]
     Indication: GENERAL ANAESTHESIA
     Dosage: 1.5 MG/KG
     Route: 042
  5. NIMBEX [Suspect]
     Dosage: 0.15 MG/KG
     Route: 042
  6. NIMBEX [Suspect]
     Dosage: 0.1-0.2 MG/KG/H
     Route: 042
  7. REMIFENTANIL [Suspect]
     Dosage: 8-12 UG/KG/H
     Route: 042

REACTIONS (1)
  - RESPIRATORY DEPRESSION [None]
